FAERS Safety Report 22213428 (Version 2)
Quarter: 2023Q2

REPORT INFORMATION
  Report Type: Spontaneous
  Country: JP (occurrence: JP)
  Receive Date: 20230414
  Receipt Date: 20230614
  Transmission Date: 20230721
  Serious: Yes (Other)
  Sender: FDA-Public Use
  Company Number: JP-BAYER-2023A045284

PATIENT
  Age: 72 Year
  Sex: Female

DRUGS (2)
  1. NEXAVAR [Suspect]
     Active Substance: SORAFENIB
     Indication: Thyroid cancer
     Dosage: UNK UNK, BID
     Route: 048
     Dates: start: 20230206
  2. NEXAVAR [Suspect]
     Active Substance: SORAFENIB
     Indication: Thyroid cancer
     Dosage: UNK
     Route: 048

REACTIONS (3)
  - Thyroid cancer [Recovering/Resolving]
  - Metastases to central nervous system [Recovering/Resolving]
  - Metastases to bone [None]

NARRATIVE: CASE EVENT DATE: 20230320
